FAERS Safety Report 24738016 (Version 1)
Quarter: 2024Q4

REPORT INFORMATION
  Report Type: Spontaneous
  Country: TR (occurrence: TR)
  Receive Date: 20241216
  Receipt Date: 20241216
  Transmission Date: 20250115
  Serious: Yes (Life-Threatening, Other)
  Sender: NOVARTIS
  Company Number: TR-002147023-NVSC2024TR237811

PATIENT
  Age: 44 Year
  Sex: Male
  Weight: 82 kg

DRUGS (1)
  1. EXFORGE [Suspect]
     Active Substance: AMLODIPINE BESYLATE\VALSARTAN
     Indication: Tension
     Dosage: UNK, 1X1
     Route: 048
     Dates: start: 20241123, end: 2024

REACTIONS (4)
  - Dyspnoea [Unknown]
  - Dysphagia [Recovered/Resolved]
  - Snoring [Unknown]
  - Oropharyngeal discomfort [Unknown]

NARRATIVE: CASE EVENT DATE: 20241208
